FAERS Safety Report 9876660 (Version 2)
Quarter: 2014Q1

REPORT INFORMATION
  Report Type: Other
  Country: US (occurrence: US)
  Receive Date: 20140206
  Receipt Date: 20140206
  Transmission Date: 20141002
  Serious: No
  Sender: FDA-Public Use
  Company Number: US-ACORDA-ACO_37883_2013

PATIENT
  Age: 66 Year
  Sex: Female
  Weight: 56.69 kg

DRUGS (4)
  1. AMPYRA [Suspect]
     Indication: PRODUCT USED FOR UNKNOWN INDICATION
     Dosage: 10 MG, BID
     Route: 048
  2. ADVAIR [Concomitant]
     Indication: PRODUCT USED FOR UNKNOWN INDICATION
     Dosage: UNK,UNK
     Route: 065
  3. PROPRANOLOL [Concomitant]
     Indication: PRODUCT USED FOR UNKNOWN INDICATION
     Dosage: UNK,UNK
     Route: 048
  4. TECFIDERA [Concomitant]
     Indication: MULTIPLE SCLEROSIS
     Dosage: UNK UNK, BID
     Route: 048

REACTIONS (3)
  - Flushing [Unknown]
  - Erythema [Unknown]
  - Pruritus [Unknown]
